FAERS Safety Report 5469407-8 (Version None)
Quarter: 2007Q3

REPORT INFORMATION
  Report Type: 
  Country: None (occurrence: None)
  Receive Date: 20070927
  Receipt Date: 20070920
  Transmission Date: 20080115
  Serious: Yes (Hospitalization)
  Sender: FDA-Public Use
  Company Number: DK-AVENTIS-200718633GDDC

PATIENT
  Age: 13 Year
  Sex: Female

DRUGS (1)
  1. NORDURINE [Suspect]
     Route: 048

REACTIONS (3)
  - AGITATION [None]
  - HALLUCINATIONS, MIXED [None]
  - PSYCHOTIC DISORDER [None]
